FAERS Safety Report 6263276-4 (Version None)
Quarter: 2009Q3

REPORT INFORMATION
  Report Type: 
  Country: None (occurrence: None)
  Receive Date: 20090710
  Receipt Date: 20090708
  Transmission Date: 20100115
  Serious: Yes (Hospitalization)
  Sender: FDA-Public Use
  Company Number: GB-SP-2009-03004

PATIENT
  Age: 53 Year
  Sex: Female

DRUGS (2)
  1. IMMUCYST [Suspect]
     Indication: BLADDER CANCER
     Route: 043
     Dates: start: 20080701
  2. IMMUCYST [Suspect]
     Route: 043
     Dates: start: 20080701

REACTIONS (6)
  - BACK PAIN [None]
  - DRUG INEFFECTIVE [None]
  - INFLUENZA LIKE ILLNESS [None]
  - METASTASES TO LYMPH NODES [None]
  - METASTASES TO SPINE [None]
  - NEOPLASM RECURRENCE [None]
